FAERS Safety Report 8546961 (Version 3)
Quarter: 2015Q1

REPORT INFORMATION
  Report Type: Report from Study
  Country: US (occurrence: US)
  Receive Date: 20120504
  Receipt Date: 20150326
  Transmission Date: 20150721
  Serious: Yes (Other)
  Sender: FDA-Public Use
  Company Number: US-ROCHE-1064897

PATIENT
  Sex: Female

DRUGS (1)
  1. XELODA [Suspect]
     Active Substance: CAPECITABINE
     Indication: BREAST CANCER FEMALE
     Dosage: 3TABS QAM + 2 TAB QPM, FOR 7 DAYS THEN OFF 7DAYS
     Route: 048

REACTIONS (2)
  - Disease progression [Unknown]
  - No therapeutic response [Unknown]
